FAERS Safety Report 7430926-6 (Version None)
Quarter: 2011Q2

REPORT INFORMATION
  Report Type: 
  Country: None (occurrence: None)
  Receive Date: 20110421
  Receipt Date: 20110420
  Transmission Date: 20111010
  Serious: Yes (Other)
  Sender: FDA-Public Use
  Company Number: US-PFIZER INC-2011086871

PATIENT
  Sex: Female
  Weight: 68.027 kg

DRUGS (3)
  1. NEXIUM [Concomitant]
     Indication: PROPHYLAXIS
  2. CELEBREX [Suspect]
     Indication: ARTHRITIS
     Dosage: 200 MG, DAILY
     Route: 048
     Dates: start: 20030101
  3. NEXIUM [Concomitant]
     Indication: GASTROOESOPHAGEAL REFLUX DISEASE
     Dosage: 40 MG, 2X/DAY
     Dates: start: 20010101

REACTIONS (3)
  - DYSPHAGIA [None]
  - DRUG ADMINISTRATION ERROR [None]
  - ARTHRITIS [None]
